FAERS Safety Report 8690886 (Version 2)
Quarter: 2013Q4

REPORT INFORMATION
  Report Type: Spontaneous
  Country: US (occurrence: US)
  Receive Date: 20120730
  Receipt Date: 20131101
  Transmission Date: 20140711
  Serious: No
  Sender: FDA-Public Use
  Company Number: US-009507513-1207USA003766

PATIENT
  Sex: Female

DRUGS (2)
  1. NEXPLANON [Suspect]
     Dosage: UNK
     Dates: start: 20120514, end: 20120627
  2. NEXPLANON [Suspect]
     Dosage: UNK
     Dates: start: 20120627

REACTIONS (2)
  - Implant site pain [Unknown]
  - Implant site pruritus [Unknown]
